FAERS Safety Report 5767197-2 (Version None)
Quarter: 2008Q2

REPORT INFORMATION
  Report Type: 
  Country: None (occurrence: None)
  Receive Date: 20080611
  Receipt Date: 20080611
  Transmission Date: 20081010
  Serious: Yes (Hospitalization)
  Sender: FDA-Public Use
  Company Number: None

PATIENT
  Sex: Male
  Weight: 97 kg

DRUGS (2)
  1. CISPLATIN [Suspect]
     Dosage: 180 MG
  2. ETOPOSIDE [Suspect]
     Dosage: 690 MG

REACTIONS (4)
  - LARYNGEAL OEDEMA [None]
  - ODYNOPHAGIA [None]
  - PHARYNGEAL OEDEMA [None]
  - WEIGHT DECREASED [None]
